FAERS Safety Report 6500205-X (Version None)
Quarter: 2009Q4

REPORT INFORMATION
  Report Type: 
  Country: None (occurrence: None)
  Receive Date: 20091127
  Receipt Date: 20081028
  Transmission Date: 20100525
  Serious: Yes (Other)
  Sender: FDA-Public Use
  Company Number: WAES 0710USA00572

PATIENT
  Sex: Female

DRUGS (6)
  1. FOSAMAX [Suspect]
     Indication: OSTEOPOROSIS
     Dosage: 10 MG/DAILY/PO 70 MG/UNK/PO
     Route: 048
     Dates: start: 20010820, end: 20051001
  2. FOSAMAX [Suspect]
     Indication: OSTEOPOROSIS
     Dosage: 10 MG/DAILY/PO 70 MG/UNK/PO
     Route: 048
     Dates: start: 19951018
  3. INDOCIN [Concomitant]
  4. MAGSAL [Concomitant]
  5. VIOXX [Concomitant]
  6. HORMONES [Concomitant]

REACTIONS (13)
  - ABSCESS [None]
  - BLOOD PRESSURE INCREASED [None]
  - DIABETES MELLITUS [None]
  - GASTRIC DISORDER [None]
  - JAW DISORDER [None]
  - LIGAMENT RUPTURE [None]
  - LIMB DISCOMFORT [None]
  - OEDEMA MOUTH [None]
  - ORAL HERPES [None]
  - OSTEONECROSIS [None]
  - PAIN IN EXTREMITY [None]
  - PLANTAR FASCIITIS [None]
  - WRIST FRACTURE [None]
